FAERS Safety Report 8611657-3 (Version None)
Quarter: 2012Q3

REPORT INFORMATION
  Report Type: 
  Country: None (occurrence: None)
  Receive Date: 20120822
  Receipt Date: 20120817
  Transmission Date: 20120928
  Serious: No
  Sender: FDA-Public Use
  Company Number: US-PFIZER INC-2012090641

PATIENT
  Age: 50 Year
  Sex: Female
  Weight: 74.83 kg

DRUGS (5)
  1. LYRICA [Suspect]
     Indication: NERVE INJURY
     Dosage: 150 MG, 3X/DAY
     Route: 048
     Dates: start: 20120101, end: 20120201
  2. SYNTHROID [Concomitant]
     Indication: HYPOTHYROIDISM
     Dosage: 150 UG, UNK
  3. LYRICA [Suspect]
     Dosage: 150 MG, 10X/DAY
     Route: 048
     Dates: start: 20120201, end: 20120401
  4. CLONIDINE [Concomitant]
     Indication: HOT FLUSH
     Dosage: 2 MG, UNK
  5. VALIUM [Concomitant]
     Indication: SLEEP DISORDER
     Dosage: UNK

REACTIONS (3)
  - INTENTIONAL OVERDOSE [None]
  - DRUG INEFFECTIVE [None]
  - PAIN [None]
